FAERS Safety Report 19750913 (Version 1)
Quarter: 2021Q3

REPORT INFORMATION
  Report Type: Spontaneous
  Country: CN (occurrence: CN)
  Receive Date: 20210826
  Receipt Date: 20210826
  Transmission Date: 20211014
  Serious: Yes (Other)
  Sender: FDA-Public Use
  Company Number: CN-PFIZER INC-202101050612

PATIENT
  Age: 88 Year
  Sex: Female

DRUGS (4)
  1. NORVASC [Suspect]
     Active Substance: AMLODIPINE BESYLATE
     Dosage: 5 DF (TOTAL OF 5 TABLETS)
     Route: 048
     Dates: start: 20210812, end: 20210813
  2. ISOSORBIDE MONONITRATE. [Concomitant]
     Active Substance: ISOSORBIDE MONONITRATE
     Indication: MYOCARDIAL INFARCTION
     Dosage: 1 DF, DAILY (ONE TABLET PER MORNING)
     Route: 048
     Dates: start: 2019
  3. METFORMIN [Concomitant]
     Active Substance: METFORMIN HYDROCHLORIDE
     Indication: DIABETES MELLITUS
     Dosage: 1 DF, DAILY (1 TABLETS OF METFORMIN EVERY MORNING)
     Route: 048
  4. NORVASC [Suspect]
     Active Substance: AMLODIPINE BESYLATE
     Indication: HYPERTENSION
     Dosage: 2 DF, DAILY (2 TABLETS PER DAY AS NEEDED)
     Dates: start: 2019

REACTIONS (6)
  - Hypoacusis [Recovering/Resolving]
  - Crying [Unknown]
  - Mental disorder [Unknown]
  - Myocardial ischaemia [Unknown]
  - Intentional product use issue [Unknown]
  - Panic reaction [Unknown]

NARRATIVE: CASE EVENT DATE: 2019
